FAERS Safety Report 9046500 (Version 1)
Quarter: 2013Q1

REPORT INFORMATION
  Report Type: Spontaneous
  Country: US (occurrence: None)
  Receive Date: 20130128
  Receipt Date: 20130128
  Transmission Date: 20140127
  Serious: Yes (Life-Threatening, Other)
  Sender: FDA-Public Use
  Company Number: None

PATIENT
  Age: 70 Year
  Sex: Female
  Weight: 54.43 kg

DRUGS (1)
  1. OPANA [Suspect]
     Indication: OSTEOPOROTIC FRACTURE
     Dates: start: 20120516, end: 20120615

REACTIONS (5)
  - Product formulation issue [None]
  - Dyspnoea [None]
  - Nausea [None]
  - Insomnia [None]
  - Muscular weakness [None]
